FAERS Safety Report 12241430 (Version 1)
Quarter: 2016Q2

REPORT INFORMATION
  Report Type: Spontaneous
  Country: US (occurrence: None)
  Receive Date: 20160405
  Receipt Date: 20160405
  Transmission Date: 20160815
  Serious: Yes (Hospitalization)
  Sender: FDA-Public Use
  Company Number: None

PATIENT
  Age: 50 Year
  Sex: Female
  Weight: 58.97 kg

DRUGS (5)
  1. CLONAZEPAM (KLONOPIN) [Concomitant]
  2. MELATONIN [Concomitant]
     Active Substance: MELATONIN
  3. PROZAC [Suspect]
     Active Substance: FLUOXETINE HYDROCHLORIDE
     Indication: DEPRESSION
     Dosage: IN THE MORNING TAKEN BY MOUTH
     Route: 048
     Dates: start: 20160303, end: 20160329
  4. FEXOFENODINE (ALLEGRA) [Concomitant]
  5. LEXAPRO [Concomitant]
     Active Substance: ESCITALOPRAM OXALATE

REACTIONS (6)
  - Anxiety [None]
  - Panic attack [None]
  - Chest discomfort [None]
  - Abdominal pain upper [None]
  - Depression [None]
  - Mental impairment [None]

NARRATIVE: CASE EVENT DATE: 20160309
